FAERS Safety Report 8993242 (Version 2)
Quarter: 2013Q1

REPORT INFORMATION
  Report Type: Spontaneous
  Country: US (occurrence: US)
  Receive Date: 20130102
  Receipt Date: 20130124
  Transmission Date: 20140127
  Serious: No
  Sender: FDA-Public Use
  Company Number: US-PFIZER INC-2012332706

PATIENT
  Age: 52 Year
  Sex: Male
  Weight: 68.93 kg

DRUGS (4)
  1. CHANTIX [Suspect]
     Indication: SMOKING CESSATION THERAPY
     Dosage: 0.5 MG, 1X/DAY
     Route: 048
     Dates: start: 201206, end: 2012
  2. CHANTIX [Suspect]
     Dosage: UNK
     Route: 048
     Dates: start: 2012, end: 2012
  3. TRAMADOL [Concomitant]
     Dosage: UNK
  4. SOMA [Concomitant]
     Dosage: UNK

REACTIONS (1)
  - Abnormal dreams [Recovered/Resolved]
